FAERS Safety Report 15943648 (Version 2)
Quarter: 2019Q1

REPORT INFORMATION
  Report Type: Spontaneous
  Country: ES (occurrence: ES)
  Receive Date: 20190210
  Receipt Date: 20190215
  Transmission Date: 20190417
  Serious: Yes (Death, Hospitalization, Other)
  Sender: FDA-Public Use
  Company Number: PHHY2019ES011327

PATIENT
  Age: 25 Year
  Sex: Female

DRUGS (1)
  1. KYMRIAH [Suspect]
     Active Substance: TISAGENLECLEUCEL
     Indication: DIFFUSE LARGE B-CELL LYMPHOMA
     Dosage: UNK
     Route: 065
     Dates: start: 20190110

REACTIONS (7)
  - Respiratory failure [Fatal]
  - Pancytopenia [Fatal]
  - Tremor [Unknown]
  - Pneumonia pseudomonal [Fatal]
  - Haemodynamic instability [Recovered/Resolved]
  - Neurotoxicity [Unknown]
  - Cytokine release syndrome [Recovered/Resolved]

NARRATIVE: CASE EVENT DATE: 20190111
